FAERS Safety Report 5682387-5 (Version None)
Quarter: 2008Q1

REPORT INFORMATION
  Report Type: 
  Country: None (occurrence: None)
  Receive Date: 20080327
  Receipt Date: 20080319
  Transmission Date: 20080703
  Serious: Yes (Other)
  Sender: FDA-Public Use
  Company Number: US-ROCHE-554017

PATIENT
  Age: 59 Year
  Sex: Female

DRUGS (3)
  1. BONIVA [Suspect]
     Indication: OSTEOPENIA
     Route: 048
     Dates: start: 20080123
  2. CALCIUM [Concomitant]
     Indication: ARTHRITIS
  3. GLUCOSAMINE [Concomitant]
     Indication: ARTHRITIS

REACTIONS (1)
  - CATARACT [None]
